FAERS Safety Report 18235732 (Version 8)
Quarter: 2021Q2

REPORT INFORMATION
  Report Type: Report from Study
  Country: US (occurrence: US)
  Receive Date: 20200905
  Receipt Date: 20210624
  Transmission Date: 20210717
  Serious: Yes (Death, Other)
  Sender: FDA-Public Use
  Company Number: NVSC2020US244230

PATIENT
  Age: 79 Year
  Sex: Male

DRUGS (3)
  1. ENTRESTO [Suspect]
     Active Substance: SACUBITRIL\VALSARTAN
     Indication: PRODUCT USED FOR UNKNOWN INDICATION
     Dosage: 50 MG, BID, (24/26 MG)
     Route: 048
     Dates: start: 20200725
  2. FAMOTIDINE. [Concomitant]
     Active Substance: FAMOTIDINE
     Indication: GASTROOESOPHAGEAL REFLUX DISEASE
     Dosage: UNK
     Route: 065
  3. ELIQUIS [Concomitant]
     Active Substance: APIXABAN
     Indication: PRODUCT USED FOR UNKNOWN INDICATION
     Dosage: UNK (OVER 1 YEAR)
     Route: 065

REACTIONS (12)
  - Cardiac failure [Unknown]
  - Heart rate increased [Unknown]
  - Dyspepsia [Unknown]
  - Gastric stenosis [Unknown]
  - Asthenia [Unknown]
  - Dyspnoea [Unknown]
  - Death [Fatal]
  - Heart rate irregular [Unknown]
  - Weight decreased [Unknown]
  - Hypotension [Unknown]
  - Post procedural haemorrhage [Unknown]
  - Blood pressure fluctuation [Unknown]

NARRATIVE: CASE EVENT DATE: 202009
